FAERS Safety Report 10016297 (Version 1)
Quarter: 2014Q1

REPORT INFORMATION
  Report Type: Spontaneous
  Country: US (occurrence: US)
  Receive Date: 20140317
  Receipt Date: 20140317
  Transmission Date: 20141002
  Serious: Yes (Other)
  Sender: FDA-Public Use
  Company Number: US-BAYER-2014-037523

PATIENT
  Age: 58 Year
  Sex: Male
  Weight: 67.12 kg

DRUGS (5)
  1. BAYER ASPIRIN REGIMEN ADULT LOW STRENGTH [Suspect]
     Indication: ISCHAEMIC HEART DISEASE PROPHYLAXIS
     Dosage: 1 DF, QD
     Route: 048
  2. BAYER ASPIRIN REGIMEN ADULT LOW STRENGTH [Suspect]
     Indication: ANTICOAGULANT THERAPY
  3. ACCUPRIL [Concomitant]
     Dosage: UNK
  4. METOPROLOL TARTRATE [Concomitant]
     Dosage: UNK
  5. PLAVIX [Concomitant]

REACTIONS (3)
  - Myocardial infarction [Recovered/Resolved]
  - Blood pressure abnormal [Not Recovered/Not Resolved]
  - Off label use [None]
